FAERS Safety Report 6112685-2 (Version None)
Quarter: 2009Q1

REPORT INFORMATION
  Report Type: 
  Country: None (occurrence: None)
  Receive Date: 20090312
  Receipt Date: 20090226
  Transmission Date: 20090719
  Serious: Yes (Death, Hospitalization)
  Sender: FDA-Public Use
  Company Number: US-PFIZER INC-2008088669

PATIENT
  Sex: Male
  Weight: 93.1 kg

DRUGS (11)
  1. SUNITINIB MALATE [Suspect]
     Indication: PROSTATE CANCER
     Dosage: 25 MG, 1X/DAY X 14 DAYS
     Route: 048
     Dates: start: 20080704, end: 20081018
  2. DOCETAXEL [Suspect]
     Indication: PROSTATE CANCER
     Dosage: 60 MG, EVERY 3 WEEKS
     Route: 042
     Dates: start: 20080704, end: 20081010
  3. PREDNISONE [Suspect]
     Indication: PROSTATE CANCER
     Dosage: 5 MG, 2X/DAY
     Route: 048
     Dates: start: 20080704, end: 20081018
  4. ADVAIR DISKUS 100/50 [Concomitant]
     Route: 048
     Dates: start: 19950101
  5. ASPIRIN [Concomitant]
     Route: 048
     Dates: start: 20000101
  6. CILOSTAZOL [Concomitant]
     Route: 048
     Dates: start: 19930101
  7. GLIPIZIDE [Concomitant]
     Route: 048
     Dates: start: 19930101
  8. LIPITOR [Concomitant]
     Route: 048
     Dates: start: 19930101
  9. LISINOPRIL [Concomitant]
     Route: 048
     Dates: start: 19930101
  10. MAGNESIUM OXIDE [Concomitant]
     Route: 048
     Dates: start: 20080407
  11. METFORMIN HCL [Concomitant]
     Route: 048
     Dates: start: 19930101

REACTIONS (2)
  - PNEUMONIA [None]
  - UROSEPSIS [None]
